FAERS Safety Report 4640473-2 (Version None)
Quarter: 2005Q2

REPORT INFORMATION
  Report Type: 
  Country: None (occurrence: None)
  Receive Date: 20050328
  Receipt Date: 20050127
  Transmission Date: 20051028
  Serious: No
  Sender: FDA-Public Use
  Company Number: USA050189330

PATIENT
  Age: 41 Year
  Sex: Male

DRUGS (1)
  1. STRATTERA [Suspect]
     Dates: start: 20050122

REACTIONS (2)
  - FEELING ABNORMAL [None]
  - FEELING HOT AND COLD [None]
